FAERS Safety Report 8473026 (Version 2)
Quarter: 2013Q4

REPORT INFORMATION
  Report Type: Spontaneous
  Country: MX (occurrence: MX)
  Receive Date: 20120322
  Receipt Date: 20131007
  Transmission Date: 20140711
  Serious: Yes (Other)
  Sender: FDA-Public Use
  Company Number: PHHY2011MX109046

PATIENT
  Age: 43 Year
  Sex: Female

DRUGS (2)
  1. EXFORGE [Suspect]
     Indication: HYPERTENSION
     Dosage: 1 DF, (160 MG VALS AND 5 MG AMLO) DAILY
     Dates: start: 20111120, end: 20111213
  2. AMFEPRAMONE [Concomitant]
     Indication: OVERWEIGHT
     Dosage: 1 DF, DAILY
     Dates: start: 20111118, end: 20111213

REACTIONS (10)
  - Abortion spontaneous [Unknown]
  - Vaginal haemorrhage [Unknown]
  - Muscle spasms [Unknown]
  - Gestational diabetes [Unknown]
  - Hypothyroidism [Unknown]
  - Nausea [Unknown]
  - Dizziness [Unknown]
  - Maternal exposure during pregnancy [Unknown]
  - Hypertension [Unknown]
  - Obesity [Unknown]
